FAERS Safety Report 19391644 (Version 1)
Quarter: 2021Q2

REPORT INFORMATION
  Report Type: Spontaneous
  Country: DE (occurrence: DE)
  Receive Date: 20210609
  Receipt Date: 20210609
  Transmission Date: 20210717
  Serious: Yes (Hospitalization, Other)
  Sender: FDA-Public Use
  Company Number: DE-SA-2021SA185969

PATIENT
  Age: 90 Year
  Sex: Male

DRUGS (10)
  1. TINZAPARIN [Suspect]
     Active Substance: TINZAPARIN
     Dosage: SOLUTION FOR INJECTION / INFUSION
     Route: 058
  2. AMLODIPIN [AMLODIPINE BESILATE] [Concomitant]
     Active Substance: AMLODIPINE BESYLATE
     Dosage: 5 MG, PRN
     Route: 048
  3. METOPROLOL. [Concomitant]
     Active Substance: METOPROLOL
     Dosage: 95 MG, 1?0?1?0, TABLETS
     Route: 048
  4. TORASEMID [Concomitant]
     Active Substance: TORSEMIDE
     Dosage: 10 MG, 1?1?0?0, TABLETS
     Route: 048
  5. CLOPIDOGREL BISULFATE. [Suspect]
     Active Substance: CLOPIDOGREL BISULFATE
     Dosage: 75 MG, QD
     Route: 048
  6. SPIRONOLACTON [Concomitant]
     Active Substance: SPIRONOLACTONE
     Dosage: 50 MG, 0?0.5?0?0, TABLETS
     Route: 048
  7. METFORMIN [Concomitant]
     Active Substance: METFORMIN HYDROCHLORIDE
     Dosage: 1000 MG, 0?0.5?0?0.5, TABLETS
     Route: 048
  8. SACUBITRIL;VALSARTAN [Concomitant]
     Active Substance: SACUBITRIL\VALSARTAN
     Dosage: 56.53 MG, 1?0?0?0, TABLETS
     Route: 048
  9. TIOTROPIUM BROMIDE [Concomitant]
     Active Substance: TIOTROPIUM BROMIDE
     Dosage: 18 ?G, 1?0?1?0, CAPSULES WITH INHALABLE POWDER
     Route: 055
  10. EDOXABAN [Concomitant]
     Active Substance: EDOXABAN TOSYLATE
     Dosage: 30 MG, 1?0?0?0, TABLETS
     Route: 048

REACTIONS (2)
  - Syncope [Recovering/Resolving]
  - Haematochezia [Recovering/Resolving]
